FAERS Safety Report 9868167 (Version 2)
Quarter: 2014Q1

REPORT INFORMATION
  Report Type: Report from Study
  Country: BR (occurrence: BR)
  Receive Date: 20140204
  Receipt Date: 20140219
  Transmission Date: 20141002
  Serious: Yes (Other)
  Sender: FDA-Public Use
  Company Number: PHHY2014BR011854

PATIENT
  Sex: Female
  Weight: 65 kg

DRUGS (3)
  1. ACLASTA [Suspect]
     Indication: OSTEOPOROSIS
     Dosage: 5 MG, (ONCE A YEAR)
     Route: 042
     Dates: start: 2013
  2. FORASEQ [Concomitant]
     Indication: BRONCHITIS
     Dosage: (DOSE OF 1 CAPSULE OF TREATMENT 1 AND SOMETIMES THE TREATMENT 2 ONCE A DAY OR PRN)
     Dates: start: 2001
  3. HYGROTON [Concomitant]
     Indication: HYPERTENSION
     Dosage: 50 MG, UNK
     Dates: start: 2004

REACTIONS (11)
  - Spinal disorder [Unknown]
  - Intervertebral disc protrusion [Unknown]
  - Concomitant disease aggravated [Unknown]
  - Herpes zoster [Recovering/Resolving]
  - Pain [Recovering/Resolving]
  - Immune system disorder [Recovering/Resolving]
  - Obesity [Recovering/Resolving]
  - Weight decreased [Recovering/Resolving]
  - Anaemia [Recovering/Resolving]
  - Insomnia [Recovering/Resolving]
  - Malaise [Recovering/Resolving]
